FAERS Safety Report 10171349 (Version 1)
Quarter: 2014Q2

REPORT INFORMATION
  Report Type: Spontaneous
  Country: US (occurrence: None)
  Receive Date: 20140507
  Receipt Date: 20140507
  Transmission Date: 20141212
  Serious: Yes (Other)
  Sender: FDA-Public Use
  Company Number: E2090-02406-SPO-US

PATIENT
  Age: 60 Year
  Sex: Female

DRUGS (3)
  1. ZONEGRAN [Suspect]
     Indication: EPILEPSY
     Route: 048
     Dates: start: 201209, end: 201210
  2. LAMICTAL [Suspect]
     Indication: PARTIAL SEIZURES
     Route: 048
     Dates: end: 20120208
  3. ASPIRIN [Concomitant]

REACTIONS (14)
  - Convulsion [None]
  - Glossodynia [None]
  - Paraesthesia oral [None]
  - Aphasia [None]
  - Fatigue [None]
  - Dizziness [None]
  - Dissociation [None]
  - Hypokinesia [None]
  - Drug interaction [None]
  - Cough [None]
  - Musculoskeletal chest pain [None]
  - Nausea [None]
  - Incorrect dose administered [None]
  - Dyspnoea [None]
